FAERS Safety Report 19105683 (Version 1)
Quarter: 2021Q2

REPORT INFORMATION
  Report Type: Report from Study
  Country: FR (occurrence: FR)
  Receive Date: 20210408
  Receipt Date: 20210408
  Transmission Date: 20210717
  Serious: Yes (Hospitalization)
  Sender: FDA-Public Use
  Company Number: FR-ROCHE-2802599

PATIENT
  Age: 50 Year
  Sex: Male

DRUGS (4)
  1. ATEZOLIZUMAB. [Suspect]
     Active Substance: ATEZOLIZUMAB
     Indication: COLORECTAL CANCER METASTATIC
     Dosage: EVERY 1 CYCLE(S)?DATE OF MOST RECENT DOSE OF ATEZOLIZUMAB PRIOR TO EVENT ONSET: 15/MAR/2021
     Route: 041
     Dates: start: 20210201
  2. OXALIPLATINE [Suspect]
     Active Substance: OXALIPLATIN
     Indication: COLORECTAL CANCER METASTATIC
     Dosage: EVERY 1 CYCLE(S)?DATE OF LAST DOSE OF OXALIPLATINE ADMINISTERED PRIOR TO AE ONSET: 15/MAR/2021
     Route: 041
     Dates: start: 20210201
  3. THERASPHERE [Suspect]
     Active Substance: YTTRIUM CHLORIDE Y-90
     Indication: COLORECTAL CANCER METASTATIC
     Dosage: DATE OF MOST RECENT DOSE OF PRIOR TO AE ONSET: 17/MAR/2021
     Route: 065
     Dates: start: 20210217
  4. CAPECITABINE. [Suspect]
     Active Substance: CAPECITABINE
     Indication: COLORECTAL CANCER METASTATIC
     Dosage: DATE OF MOST RECENT DOSE OF CAPECITABINE PRIOR TO AE ONSET: 15/MAR/2021
     Route: 041
     Dates: start: 20210201

REACTIONS (1)
  - Pyrexia [Not Recovered/Not Resolved]

NARRATIVE: CASE EVENT DATE: 20210325
